FAERS Safety Report 9372831 (Version 2)
Quarter: 2013Q3

REPORT INFORMATION
  Report Type: Spontaneous
  Country: PE (occurrence: PE)
  Receive Date: 20130627
  Receipt Date: 20130710
  Transmission Date: 20140515
  Serious: Yes (Other)
  Sender: FDA-Public Use
  Company Number: PE-PFIZER INC-2013191352

PATIENT
  Age: 77 Year
  Sex: Female

DRUGS (3)
  1. NORVASC [Suspect]
     Dosage: UNK
     Route: 048
  2. DORIXINA [Concomitant]
     Route: 048
  3. OMEPRAZOLE [Concomitant]
     Dosage: 20 MG, UNK
     Route: 048

REACTIONS (2)
  - Fracture [Recovering/Resolving]
  - Nasopharyngitis [Recovering/Resolving]
